FAERS Safety Report 7300661-3 (Version None)
Quarter: 2011Q1

REPORT INFORMATION
  Report Type: 
  Country: None (occurrence: None)
  Receive Date: 20110207
  Receipt Date: 20110124
  Transmission Date: 20110831
  Serious: Yes (Life-Threatening, Hospitalization)
  Sender: FDA-Public Use
  Company Number: DSM-2011-00084

PATIENT
  Age: 87 Year
  Sex: Female

DRUGS (8)
  1. AMLOR (AMLODIPINE BESILATE) (TABLET) (AMLODIPINE BESILATE) [Suspect]
     Indication: HYPERTENSION
     Dosage: 5 MG (5 MG, 1 IN 1 D),ORAL
     Route: 048
     Dates: end: 20101015
  2. LASIX FAIBLE (FUROSEMIDE) (TABLET) (FUROSEMIDE) [Suspect]
     Indication: HYPERTENSION
     Dosage: 20 MG (20 MG,1 IN 1 D),ORAL
     Route: 048
     Dates: end: 20101115
  3. SMECTA IPSEN (SMECTITE) (SMECTITE) [Concomitant]
  4. GLUCOPHAGE [Suspect]
     Indication: TYPE 2 DIABETES MELLITUS
     Dosage: ORAL
     Route: 048
     Dates: end: 20101115
  5. TANAKAN (GINKGO BILOBA) (GINKGO BILOBA) [Suspect]
     Indication: PRODUCT USED FOR UNKNOWN INDICATION
     Dosage: 2 DOSAGE FORMS,ORAL
     Route: 048
     Dates: end: 20101015
  6. SPASFON (PHLOROGLUCINOL, TRIMETHYLPHLOROGLUCINOL) (PHLOROGLUCINOL, TRI [Concomitant]
  7. OLMETEC (OLMESARTAN MEDOXOMIL) (TABLET) (OLMESARTAN MEDOXOMIL) [Suspect]
     Indication: HYPERTENSION
     Dosage: 40 MG (40 MG,1 IN 1 D),ORAL
     Route: 048
     Dates: end: 20101115
  8. CONTRAST MEDIA (CONTRACT MEDIA) [Suspect]
     Indication: SCAN BRAIN
     Dosage: INTRAVENOUS(NOT OTHERWISE SPECIFIED)
     Route: 042
     Dates: start: 20101115, end: 20101115

REACTIONS (12)
  - RENAL FAILURE ACUTE [None]
  - DIARRHOEA [None]
  - HYPERKALAEMIA [None]
  - COMA [None]
  - CARDIOMEGALY [None]
  - CEREBROVASCULAR ACCIDENT [None]
  - LACTIC ACIDOSIS [None]
  - CARDIO-RESPIRATORY ARREST [None]
  - ATRIOVENTRICULAR BLOCK COMPLETE [None]
  - VOMITING [None]
  - DIALYSIS [None]
  - ACCIDENTAL OVERDOSE [None]
